FAERS Safety Report 9800020 (Version 1)
Quarter: 2014Q1

REPORT INFORMATION
  Report Type: Spontaneous
  Country: US (occurrence: US)
  Receive Date: 20140106
  Receipt Date: 20140106
  Transmission Date: 20141002
  Serious: No
  Sender: FDA-Public Use
  Company Number: US-GILEAD-2010-0030966

PATIENT
  Sex: Male

DRUGS (9)
  1. LETAIRIS [Suspect]
     Indication: PULMONARY ARTERIAL HYPERTENSION
     Route: 048
     Dates: start: 20100616
  2. GLYBURIDE [Concomitant]
  3. HYDROCODONE BITARTRATE [Concomitant]
  4. LACTULOSE [Concomitant]
  5. LISINOPRIL [Concomitant]
  6. SPIRONOLACTONE [Concomitant]
  7. XIFAXAN [Concomitant]
  8. GABAPEN [Concomitant]
  9. METOPROLOL [Concomitant]

REACTIONS (2)
  - Local swelling [Unknown]
  - Fatigue [Unknown]
